FAERS Safety Report 16130266 (Version 1)
Quarter: 2019Q1

REPORT INFORMATION
  Report Type: Spontaneous
  Country: US (occurrence: US)
  Receive Date: 20190328
  Receipt Date: 20190328
  Transmission Date: 20190418
  Serious: Yes (Death)
  Sender: FDA-Public Use
  Company Number: US-PROCTER_AND_GAMBLE-GS19030804

PATIENT
  Sex: Male

DRUGS (1)
  1. CREST FOR KIDS, FLAVOR UNKNOWN (SODIUM FLUORIDE\SODIUM MONOFLUOROPHOSPHATE) [Suspect]
     Active Substance: SODIUM FLUORIDE\SODIUM MONOFLUOROPHOSPHATE
     Route: 048

REACTIONS (3)
  - Accidental exposure to product by child [Unknown]
  - Fluorosis [Fatal]
  - Exposure via ingestion [Unknown]
